FAERS Safety Report 9970204 (Version 1)
Quarter: 2014Q1

REPORT INFORMATION
  Report Type: Spontaneous
  Country: US (occurrence: None)
  Receive Date: 20140304
  Receipt Date: 20140304
  Transmission Date: 20141002
  Serious: Yes (Other)
  Sender: FDA-Public Use
  Company Number: 7271066

PATIENT
  Age: 66 Year
  Sex: Female

DRUGS (2)
  1. LEVOTHYROX [Suspect]
     Indication: HYPOTHYROIDISM
     Route: 048
  2. BISOPROLOL [Suspect]
     Indication: HYPERTENSION
     Route: 048

REACTIONS (4)
  - Angioedema [None]
  - Ear pain [None]
  - Stress [None]
  - Hypersensitivity [None]
